FAERS Safety Report 8951061 (Version 1)
Quarter: 2012Q4

REPORT INFORMATION
  Report Type: 
  Country: DE (occurrence: DE)
  Receive Date: 20121207
  Receipt Date: 20121207
  Transmission Date: 20130627
  Serious: Yes (Other)
  Sender: FDA-Public Use
  Company Number: DE-PFIZER INC-2012304797

PATIENT

DRUGS (1)
  1. DETRUSITOL [Suspect]
     Indication: OVERACTIVE BLADDER
     Dosage: UNK

REACTIONS (1)
  - Anticholinergic syndrome [Unknown]
